FAERS Safety Report 7954202-8 (Version None)
Quarter: 2011Q4

REPORT INFORMATION
  Report Type: 
  Country: None (occurrence: None)
  Receive Date: 20111202
  Receipt Date: 20111123
  Transmission Date: 20120403
  Serious: Yes (Hospitalization)
  Sender: FDA-Public Use
  Company Number: DE-PFIZER INC-2011219694

PATIENT
  Age: 51 Year
  Sex: Male
  Weight: 84 kg

DRUGS (3)
  1. RITUXIMAB [Suspect]
     Dosage: 755.71 MG, UNK
     Dates: start: 20110524
  2. TEMSIROLIMUS [Suspect]
     Dosage: 50 MG, UNK
     Dates: start: 20110526
  3. BENDAMUSTINE [Suspect]
     Dosage: 174.6 MG, UNK
     Dates: start: 20110525

REACTIONS (2)
  - DEVICE RELATED INFECTION [None]
  - SOFT TISSUE INFECTION [None]
